FAERS Safety Report 4840520-9 (Version None)
Quarter: 2005Q4

REPORT INFORMATION
  Report Type: 
  Country: None (occurrence: None)
  Receive Date: 20051129
  Receipt Date: 20051129
  Transmission Date: 20060501
  Serious: No
  Sender: FDA-Public Use
  Company Number: None

PATIENT
  Age: 44 Year
  Sex: Female
  Weight: 48.9885 kg

DRUGS (2)
  1. CELEBREX [Suspect]
     Indication: BACK DISORDER
     Dosage: 100MG  3XDAY
     Dates: start: 20010223, end: 20020511
  2. NAPROXEN [Suspect]
     Indication: BACK DISORDER
     Dosage: 550MG  2XDAY
     Dates: start: 20020412, end: 20050429

REACTIONS (5)
  - BLISTER [None]
  - DRUG HYPERSENSITIVITY [None]
  - HYPERSENSITIVITY [None]
  - SCAR [None]
  - SKIN BURNING SENSATION [None]
